FAERS Safety Report 7199785-3 (Version None)
Quarter: 2010Q4

REPORT INFORMATION
  Report Type: 
  Country: None (occurrence: None)
  Receive Date: 20101228
  Receipt Date: 20101220
  Transmission Date: 20110411
  Serious: Yes (Hospitalization)
  Sender: FDA-Public Use
  Company Number: BR-ROCHE-749034

PATIENT
  Age: 57 Year
  Sex: Male

DRUGS (3)
  1. PEGINTERFERON ALFA-2A [Suspect]
     Route: 065
     Dates: start: 20080301
  2. RIBAVIRIN [Concomitant]
     Route: 065
     Dates: start: 20080301
  3. LOSARTAN [Concomitant]
     Indication: HYPERTENSION

REACTIONS (3)
  - FOCAL SEGMENTAL GLOMERULOSCLEROSIS [None]
  - NEPHROTIC SYNDROME [None]
  - RENAL FAILURE ACUTE [None]
